FAERS Safety Report 17268713 (Version 2)
Quarter: 2020Q1

REPORT INFORMATION
  Report Type: Report from Study
  Country: DE (occurrence: DE)
  Receive Date: 20200114
  Receipt Date: 20200129
  Transmission Date: 20200409
  Serious: Yes (Other)
  Sender: FDA-Public Use
  Company Number: DE-BAYER-2020-003951

PATIENT
  Age: 58 Year
  Sex: Female

DRUGS (2)
  1. BETAFERON [Suspect]
     Active Substance: INTERFERON BETA-1B
     Indication: MULTIPLE SCLEROSIS
     Dosage: 250 ?G, QOD
     Route: 058
     Dates: start: 20120101
  2. BETAFERON [Suspect]
     Active Substance: INTERFERON BETA-1B
     Indication: MULTIPLE SCLEROSIS
     Dosage: 250 ?G, QOD
     Route: 058
     Dates: start: 2007

REACTIONS (4)
  - Skin disorder [Not Recovered/Not Resolved]
  - Lung disorder [None]
  - Lymphadenectomy [None]
  - Malignant melanoma in situ [Not Recovered/Not Resolved]

NARRATIVE: CASE EVENT DATE: 201911
